FAERS Safety Report 9678242 (Version 1)
Quarter: 2013Q4

REPORT INFORMATION
  Report Type: Spontaneous
  Country: US (occurrence: US)
  Receive Date: 20131108
  Receipt Date: 20131108
  Transmission Date: 20140711
  Serious: Yes (Other)
  Sender: FDA-Public Use
  Company Number: US-ACTAVIS-2013-19823

PATIENT
  Sex: Female
  Weight: 118 kg

DRUGS (3)
  1. FORTAMET EXTENDED RELEASE (WATSON LABORATORIES) [Suspect]
     Indication: PRODUCT USED FOR UNKNOWN INDICATION
     Dosage: UNK, UNKNOWN
     Route: 065
  2. GABAPENTIN [Suspect]
     Indication: NEURALGIA
     Dosage: 1200 MG, BID
     Route: 048
     Dates: start: 201307
  3. LISINOPRIL [Concomitant]
     Indication: HYPERTENSION
     Dosage: UNK, UNKNOWN
     Route: 065

REACTIONS (3)
  - Blood glucose increased [Unknown]
  - Protein urine [Unknown]
  - Diabetic neuropathy [Unknown]
